FAERS Safety Report 7312972-6 (Version None)
Quarter: 2011Q1

REPORT INFORMATION
  Report Type: 
  Country: None (occurrence: None)
  Receive Date: 20110224
  Receipt Date: 20110214
  Transmission Date: 20110831
  Serious: Yes (Hospitalization)
  Sender: FDA-Public Use
  Company Number: US-ELI_LILLY_AND_COMPANY-US201102004478

PATIENT
  Sex: Female

DRUGS (8)
  1. BYETTA [Suspect]
     Indication: TYPE 2 DIABETES MELLITUS
     Dosage: 5 UG, UNK
     Route: 058
  2. LOSARTAN POTASSIUM [Concomitant]
     Dosage: UNK, DAILY (1/D)
  3. ATENOLOL [Concomitant]
     Dosage: 20 MG, DAILY (1/D)
     Route: 048
  4. SIMVASTATIN [Concomitant]
     Dosage: 20 MG, UNK
     Route: 048
  5. ASPIRIN [Concomitant]
     Dosage: 81 MG, DAILY (1/D)
     Route: 048
  6. COZAAR [Concomitant]
     Dosage: 50 MG, DAILY (1/D)
  7. DIOVAN [Concomitant]
     Indication: HYPERTENSION
  8. ACTOS [Concomitant]
     Indication: TYPE 2 DIABETES MELLITUS
     Dosage: 15 MG, UNK
     Route: 048

REACTIONS (1)
  - PANCREATITIS [None]
